FAERS Safety Report 20697577 (Version 4)
Quarter: 2022Q2

REPORT INFORMATION
  Report Type: Spontaneous
  Country: FI (occurrence: FI)
  Receive Date: 20220411
  Receipt Date: 20220629
  Transmission Date: 20220721
  Serious: Yes (Hospitalization)
  Sender: FDA-Public Use
  Company Number: FI-BIOGEN-2022BI01112059

PATIENT
  Age: 69 Year
  Sex: Female

DRUGS (2)
  1. ADUCANUMAB [Suspect]
     Active Substance: ADUCANUMAB
     Indication: Product used for unknown indication
     Dosage: INFUSION 1
     Route: 065
     Dates: start: 20220211
  2. ADUCANUMAB [Suspect]
     Active Substance: ADUCANUMAB
     Dosage: INFUSION 2
     Route: 065
     Dates: start: 20220311

REACTIONS (5)
  - Amyloid related imaging abnormality-microhaemorrhages and haemosiderin deposits [Unknown]
  - Amyloid related imaging abnormality-oedema/effusion [Recovered/Resolved]
  - Headache [Unknown]
  - Vomiting [Unknown]
  - Nausea [Recovered/Resolved]

NARRATIVE: CASE EVENT DATE: 20220322
